FAERS Safety Report 8966303 (Version 1)
Quarter: 2012Q4

REPORT INFORMATION
  Report Type: 
  Country: US (occurrence: US)
  Receive Date: 20121216
  Receipt Date: 20121216
  Transmission Date: 20130627
  Serious: Yes (Other)
  Sender: FDA-Public Use
  Company Number: US-BRISTOL-MYERS SQUIBB COMPANY-17185547

PATIENT
  Age: 84 Year
  Sex: Female

DRUGS (11)
  1. PRAVASTATIN SODIUM [Suspect]
  2. COLACE [Suspect]
  3. OMEPRAZOLE [Suspect]
  4. CENTRUM SILVER [Suspect]
  5. SPIRONOLACTONE\HYDROCHLOROTHIAZIDE [Suspect]
     Dosage: spironolactone HCTZ 25/25
  6. OMEGA 3 [Suspect]
     Dosage: omega 3 EPA-DHA
  7. BIOTIN [Suspect]
  8. CALTRATE [Suspect]
     Dosage: 6000^s D soft chews
  9. METOPROLOL [Suspect]
  10. VITAMIN B COMPLEX [Suspect]
     Dosage: Super B complex
  11. LACTOBACILLUS REUTERI [Suspect]
     Dosage: Colon Health Probiotic 100

REACTIONS (1)
  - Blindness transient [Unknown]
